FAERS Safety Report 9481851 (Version 2)
Quarter: 2013Q3

REPORT INFORMATION
  Report Type: Spontaneous
  Country: US (occurrence: US)
  Receive Date: 20130828
  Receipt Date: 20130828
  Transmission Date: 20140515
  Serious: Yes (Hospitalization, Other)
  Sender: FDA-Public Use
  Company Number: US-AMGEN-KDL220605

PATIENT
  Age: 70 Year
  Sex: Female
  Weight: 96.7 kg

DRUGS (25)
  1. ENBREL [Suspect]
     Indication: PSORIATIC ARTHROPATHY
     Dosage: 50 MG, QWK
     Route: 058
     Dates: start: 20061203
  2. ENBREL [Suspect]
     Indication: JUVENILE IDIOPATHIC ARTHRITIS
  3. ENBREL [Suspect]
     Indication: PSORIASIS
  4. DEXTROPROPOXYPHENE NAPSILATE W/ ACETOMINOPHEN [Concomitant]
     Dosage: UNK UNK, QID
     Route: 048
  5. TOLTERODINE TARTRATE [Concomitant]
     Dosage: 2 MG, BID
     Route: 048
  6. DIGOXIN [Concomitant]
     Dosage: .25 MG, QD
     Route: 048
  7. VALSARTAN [Concomitant]
     Dosage: 160 MG, BID
     Route: 048
  8. ESTRADIOL [Concomitant]
     Dosage: .05 MG, 2 TIMES/WK
     Route: 062
  9. CYCLOBENZAPRINE HYDROCHLORIDE [Concomitant]
     Dosage: 10 MG, TID
     Route: 048
  10. INSULIN LISPRO [Concomitant]
     Dosage: UNK UNK, UNK
     Route: 058
  11. INSULIN HUMAN [Concomitant]
     Dosage: UNK UNK, TID
     Route: 058
  12. INSULIN GLARGINE [Concomitant]
     Dosage: UNK UNK, QD
     Route: 058
  13. FUROSEMIDE [Concomitant]
     Dosage: 80 MG, BID
     Route: 048
  14. NITROFURANTOIN MONOHYDRATE [Concomitant]
     Dosage: 100 MG, BID
     Route: 048
  15. AMLODIPINE BESILATE [Concomitant]
     Dosage: 10 MG, QD
     Route: 048
  16. CLOPIDOGREL BISULFATE [Concomitant]
     Dosage: 75 MG, QD
     Route: 048
  17. POTASSIUM CHLORIDE [Concomitant]
     Dosage: 20 MEQ, QD
     Route: 048
  18. PREDNISONE [Concomitant]
     Dosage: 5 MG, TID
     Route: 048
  19. OMEPRAZOLE [Concomitant]
     Dosage: 20 MG, QD
     Route: 048
  20. TRAMADOL HYDROCHLORIDE [Concomitant]
     Dosage: 50 MG, Q6H
     Route: 048
  21. AZITHROMYCIN [Concomitant]
     Dosage: 250 MG, UNK
     Route: 048
  22. TRIAMCINOLONE [Concomitant]
     Dosage: 1.5 ML, UNK
  23. CALCIPOTRIENE [Concomitant]
  24. CLOBETASOL [Concomitant]
  25. CALCIUM WITH VITAMIN D [Concomitant]

REACTIONS (8)
  - Respiratory disorder [Unknown]
  - Pericarditis [Unknown]
  - Cellulitis [Unknown]
  - Urinary tract infection [Unknown]
  - Sinusitis [Unknown]
  - Sciatica [Recovered/Resolved]
  - Dizziness [Recovered/Resolved]
  - Nausea [Recovered/Resolved]
